FAERS Safety Report 7110822 (Version 3)
Quarter: 2015Q1

REPORT INFORMATION
  Report Type: Report from Study
  Country: CN (occurrence: CN)
  Receive Date: 20090911
  Receipt Date: 20150112
  Transmission Date: 20150721
  Serious: Yes (Hospitalization)
  Sender: FDA-Public Use
  Company Number: CN-ROCHE-653860

PATIENT
  Age: 55 Year
  Sex: Male
  Weight: 55 kg

DRUGS (3)
  1. CAPECITABINE. [Suspect]
     Active Substance: CAPECITABINE
     Indication: GASTRIC CANCER
     Dosage: REPORTED FREQUENCY: D1-D14 Q3W. ROUTE: BID PO.
     Route: 048
     Dates: start: 20090714, end: 20090831
  2. CISPLATIN. [Suspect]
     Active Substance: CISPLATIN
     Indication: GASTRIC CANCER
     Dosage: DOSE FORM: INFUSION.
     Route: 042
  3. BEVACIZUMAB [Suspect]
     Active Substance: BEVACIZUMAB
     Indication: GASTRIC CANCER
     Dosage: FREQUENCY: D1 Q3W, DOSE FORM: INFUSION.
     Route: 042
     Dates: start: 20090714, end: 20091231

REACTIONS (1)
  - Diabetes mellitus [Recovered/Resolved with Sequelae]

NARRATIVE: CASE EVENT DATE: 20090826
